FAERS Safety Report 12712106 (Version 1)
Quarter: 2016Q3

REPORT INFORMATION
  Report Type: Report from Study
  Country: US (occurrence: US)
  Receive Date: 20160902
  Receipt Date: 20160902
  Transmission Date: 20161109
  Serious: Yes (Hospitalization)
  Sender: FDA-Public Use
  Company Number: US-PFIZER INC-2013105796

PATIENT
  Age: 63 Year
  Sex: Female
  Weight: 97.51 kg

DRUGS (15)
  1. IBUPROFEN. [Suspect]
     Active Substance: IBUPROFEN
     Indication: OSTEOARTHRITIS
     Dosage: UNK
     Route: 048
     Dates: start: 20110917, end: 20130329
  2. IBUPROFEN. [Suspect]
     Active Substance: IBUPROFEN
     Indication: RHEUMATOID ARTHRITIS
  3. HYDROYZ HCL [Concomitant]
     Indication: ANXIETY
     Dosage: 10 MG, QHS
     Route: 048
     Dates: start: 20110726
  4. FLOVENT [Concomitant]
     Active Substance: FLUTICASONE PROPIONATE
     Indication: CHRONIC OBSTRUCTIVE PULMONARY DISEASE
     Dosage: 2 PUFFS, 2X/DAY
     Route: 055
     Dates: start: 2001
  5. RISPERIDONE. [Concomitant]
     Active Substance: RISPERIDONE
     Indication: ANXIETY
     Dosage: 1 MG, QHS
     Route: 048
     Dates: start: 20110726
  6. METHOCARBAMOL. [Concomitant]
     Active Substance: METHOCARBAMOL
     Indication: OSTEOARTHRITIS
     Dosage: 500 MG AS NEEDED
     Route: 048
     Dates: start: 20110917
  7. CALCARB WITH VIT. D [Concomitant]
     Indication: SUPPLEMENTATION THERAPY
     Dosage: 1200 MG, 2X/DAY
     Route: 048
     Dates: start: 2010
  8. CALCIUM CARBONATE. [Concomitant]
     Active Substance: CALCIUM CARBONATE
     Indication: SUPPLEMENTATION THERAPY
     Dosage: 1300 MG, EVERY 4 HOURS
     Route: 048
  9. ASPIRIN ^BAYER^ [Concomitant]
     Active Substance: ASPIRIN
     Indication: PROPHYLAXIS
     Dosage: 81 MG, 1X/DAY
     Route: 048
     Dates: start: 2008
  10. CALCIUM [Concomitant]
     Active Substance: CALCIUM
     Indication: SUPPLEMENTATION THERAPY
     Dosage: 2400 MG, 3X/DAY
     Route: 048
     Dates: start: 20111115
  11. LEVOTHYROXINE. [Concomitant]
     Active Substance: LEVOTHYROXINE
     Indication: HYPOTHYROIDISM
     Dosage: 250 UG, 1X/DAY
     Route: 048
     Dates: start: 201009, end: 20130314
  12. LISINOPRIL. [Concomitant]
     Active Substance: LISINOPRIL
     Indication: HYPERTENSION
     Dosage: 40 MG, 1X/DAY
     Route: 048
     Dates: start: 201009, end: 20130314
  13. NEXIUM [Concomitant]
     Active Substance: ESOMEPRAZOLE MAGNESIUM
     Indication: PROPHYLAXIS
     Dosage: 40 MG (HIGH DOSE), 1X/DAY
     Route: 048
     Dates: start: 20120911, end: 20130329
  14. CALCITROL [Concomitant]
     Active Substance: CALCITRIOL
     Indication: SUPPLEMENTATION THERAPY
     Dosage: 0.5 UG, 2X/DAY
     Route: 048
     Dates: start: 2010
  15. ALBUTEROL. [Concomitant]
     Active Substance: ALBUTEROL
     Indication: CHRONIC OBSTRUCTIVE PULMONARY DISEASE
     Dosage: 2 PUFFS, AS NEEDED
     Route: 055
     Dates: start: 2001

REACTIONS (2)
  - Acute kidney injury [Recovered/Resolved]
  - Gastrointestinal haemorrhage [Recovered/Resolved]

NARRATIVE: CASE EVENT DATE: 20130301
